FAERS Safety Report 23226474 (Version 1)
Quarter: 2023Q4

REPORT INFORMATION
  Report Type: Spontaneous
  Country: CA (occurrence: CA)
  Receive Date: 20231124
  Receipt Date: 20231124
  Transmission Date: 20240110
  Serious: Yes (Death)
  Sender: FDA-Public Use
  Company Number: CA-PFIZER INC-202300053764

PATIENT
  Age: 65 Year
  Sex: Male

DRUGS (5)
  1. RUXIENCE [Suspect]
     Active Substance: RITUXIMAB-PVVR
     Dosage: 1 DF, DOSAGE INFORMATION NOT AVAILABLE
     Route: 042
  2. RUXIENCE [Suspect]
     Active Substance: RITUXIMAB-PVVR
     Dosage: 1000 MG AT WEEKS 0 AND 2 EVERY 6 MONTHS
     Dates: start: 20230518
  3. RUXIENCE [Suspect]
     Active Substance: RITUXIMAB-PVVR
     Dosage: 1000 MG AT WEEKS 0 AND 2 EVERY 6 MONTHS
     Dates: start: 20230602
  4. PREDNISONE [Concomitant]
     Active Substance: PREDNISONE
     Dosage: 20 MG
     Dates: start: 20230111
  5. PLAQUENIL [Concomitant]
     Active Substance: HYDROXYCHLOROQUINE SULFATE

REACTIONS (5)
  - Death [Fatal]
  - Dyspnoea [Unknown]
  - Decreased appetite [Unknown]
  - Condition aggravated [Unknown]
  - Off label use [Unknown]
